FAERS Safety Report 11468435 (Version 2)
Quarter: 2015Q3

REPORT INFORMATION
  Report Type: Spontaneous
  Country: US (occurrence: US)
  Receive Date: 20150903
  Receipt Date: 20150903
  Transmission Date: 20151125
  Serious: No
  Sender: FDA-Public Use
  Company Number: US-ELI_LILLY_AND_COMPANY-US201109002473

PATIENT
  Age: 84 Year
  Sex: Female

DRUGS (1)
  1. CYMBALTA [Suspect]
     Active Substance: DULOXETINE HYDROCHLORIDE
     Indication: NEUROPATHY PERIPHERAL
     Dosage: 30 MG, QD
     Dates: start: 201108

REACTIONS (12)
  - Decreased appetite [Unknown]
  - Intentional product misuse [Unknown]
  - Abdominal distension [Unknown]
  - Dry mouth [Unknown]
  - Somnolence [Recovering/Resolving]
  - Hyperhidrosis [Unknown]
  - Fatigue [Unknown]
  - Off label use [Unknown]
  - Abdominal rigidity [Recovering/Resolving]
  - Palpitations [Recovering/Resolving]
  - Constipation [Unknown]
  - Weight increased [Unknown]

NARRATIVE: CASE EVENT DATE: 201108
